FAERS Safety Report 6689497-4 (Version None)
Quarter: 2010Q2

REPORT INFORMATION
  Report Type: 
  Country: None (occurrence: None)
  Receive Date: 20100421
  Receipt Date: 20100412
  Transmission Date: 20101027
  Serious: No
  Sender: FDA-Public Use
  Company Number: US-BIOGENIDEC-2010BI012572

PATIENT
  Age: 50 Year
  Sex: Male

DRUGS (2)
  1. TYSABRI [Suspect]
     Indication: MULTIPLE SCLEROSIS
     Route: 042
     Dates: start: 20071109
  2. CYMBALTA [Concomitant]
     Indication: DEPRESSION
     Dates: end: 20091001

REACTIONS (3)
  - ASTHENIA [None]
  - DEPRESSION [None]
  - INFLUENZA [None]
